FAERS Safety Report 7727754-0 (Version None)
Quarter: 2011Q3

REPORT INFORMATION
  Report Type: 
  Country: None (occurrence: None)
  Receive Date: 20110902
  Receipt Date: 20110824
  Transmission Date: 20111222
  Serious: Yes (Other)
  Sender: FDA-Public Use
  Company Number: US-RB-026622-11

PATIENT
  Age: 27 Year
  Sex: Male

DRUGS (4)
  1. DIAZEPAM [Suspect]
     Indication: ANXIETY
     Route: 065
     Dates: end: 20110701
  2. TRAZODONE HCL [Suspect]
     Indication: ANXIETY
     Dosage: DOSING INFORMATION UNKNOWN
     Route: 065
     Dates: end: 20110701
  3. PAXIL [Suspect]
     Indication: ANXIETY
     Dosage: DOSING INFORMATION UNKNOWN
     Route: 065
     Dates: end: 20110701
  4. SUBOXONE [Suspect]
     Indication: DRUG DEPENDENCE
     Dosage: SUBLINGUAL FILM - 16 MG TAPERED TO 8 MG DAILY
     Route: 060
     Dates: start: 20110101, end: 20110701

REACTIONS (7)
  - CONVULSION [None]
  - NERVOUSNESS [None]
  - CONDITION AGGRAVATED [None]
  - TREMOR [None]
  - ANXIETY [None]
  - UNDERDOSE [None]
  - DRUG WITHDRAWAL SYNDROME [None]
